FAERS Safety Report 7362440-0 (Version None)
Quarter: 2011Q1

REPORT INFORMATION
  Report Type: 
  Country: None (occurrence: None)
  Receive Date: 20110318
  Receipt Date: 20110311
  Transmission Date: 20110831
  Serious: Yes (Other)
  Sender: FDA-Public Use
  Company Number: US-US-EMD SERONO, INC.-7047643

PATIENT
  Sex: Male

DRUGS (3)
  1. GABAPENTIN [Concomitant]
     Indication: PAIN IN EXTREMITY
  2. REBIF [Suspect]
     Indication: MULTIPLE SCLEROSIS
     Route: 058
     Dates: start: 20110112
  3. OXYCONTIN [Concomitant]
     Indication: PAIN IN EXTREMITY

REACTIONS (2)
  - SELF-INJURIOUS IDEATION [None]
  - DIZZINESS [None]
